FAERS Safety Report 9540446 (Version 1)
Quarter: 2013Q3

REPORT INFORMATION
  Report Type: Report from Study
  Country: HU (occurrence: HU)
  Receive Date: 20130920
  Receipt Date: 20130920
  Transmission Date: 20140515
  Serious: Yes (Hospitalization)
  Sender: FDA-Public Use
  Company Number: HU-GLAXOSMITHKLINE-B0923970A

PATIENT
  Age: 61 Year
  Sex: Female

DRUGS (11)
  1. SERETIDE [Suspect]
     Indication: PRODUCT USED FOR UNKNOWN INDICATION
     Dosage: 1PUFF TWICE PER DAY
     Route: 055
     Dates: start: 201212, end: 20130330
  2. NOOTROPIL [Concomitant]
     Dates: start: 2005
  3. CALCIUM [Concomitant]
     Dates: start: 201301
  4. VITAMINE D3 [Concomitant]
     Dates: start: 201302
  5. TRAMADOL [Concomitant]
  6. MILURIT [Concomitant]
  7. SIMVASTATIN [Concomitant]
  8. THEOSPIREX [Concomitant]
     Dosage: 150MG TWICE PER DAY
  9. COVEREX [Concomitant]
  10. ANTICOAGULANT [Concomitant]
  11. ATIMOS [Concomitant]
     Dosage: 1PUFF TWICE PER DAY

REACTIONS (5)
  - Oral fungal infection [Recovered/Resolved]
  - Bronchitis [Recovered/Resolved]
  - Pyrexia [Recovered/Resolved]
  - Weight decreased [Recovered/Resolved]
  - Asthenia [Recovered/Resolved]
